FAERS Safety Report 5226178-8 (Version None)
Quarter: 2007Q1

REPORT INFORMATION
  Report Type: 
  Country: None (occurrence: None)
  Receive Date: 20070129
  Receipt Date: 20061130
  Transmission Date: 20070707
  Serious: Yes (Death)
  Sender: FDA-Public Use
  Company Number: T200601691

PATIENT
  Age: 43 Year
  Sex: 0

DRUGS (1)
  1. OXYCODONE HCL [Suspect]

REACTIONS (1)
  - DEATH [None]
